FAERS Safety Report 8418163-X (Version None)
Quarter: 2012Q2

REPORT INFORMATION
  Report Type: 
  Country: None (occurrence: None)
  Receive Date: 20120607
  Receipt Date: 20120530
  Transmission Date: 20120825
  Serious: Yes (Other)
  Sender: FDA-Public Use
  Company Number: US-BAYER-2011-076174

PATIENT
  Age: 49 Year
  Sex: Female
  Weight: 61.224 kg

DRUGS (10)
  1. BENADRYL [Concomitant]
     Indication: SLEEP DISORDER THERAPY
     Dosage: 12.5 MG, PRN
     Dates: start: 19980101
  2. YASMIN [Suspect]
     Dosage: UNK
     Dates: start: 20070101, end: 20080801
  3. DROSPIRENONE AND ETHINYL ESTRADIOL [Suspect]
     Dosage: UNK
     Dates: start: 20080901, end: 20090901
  4. ACIPHEX [Concomitant]
     Indication: GASTROOESOPHAGEAL REFLUX DISEASE
     Dosage: 20 MG 2 [TIMES] DAY EVERY DAY
     Route: 048
     Dates: start: 20061012
  5. YASMIN [Suspect]
     Indication: CONTRACEPTION
     Dates: start: 20090901, end: 20100401
  6. ACIPHEX [Concomitant]
     Dosage: UNK
     Dates: start: 20100221
  7. PHENAZOPYRIDINE HCL TAB [Concomitant]
     Indication: URINARY TRACT PAIN
     Dosage: 200 MG, TID
  8. MULTI-VITAMIN [Concomitant]
     Dosage: UNK
     Route: 048
     Dates: start: 20050608
  9. PHENAZOPYRIDINE HCL TAB [Concomitant]
     Indication: URINARY TRACT PAIN
     Dosage: 200 MG, [ONE] TID PRN
     Dates: start: 20100405
  10. CIPROFLOXACIN [Concomitant]
     Dosage: 500 MG [ONE] BID [TIMES] 5 DAY
     Dates: start: 20100405

REACTIONS (8)
  - DEEP VEIN THROMBOSIS [None]
  - POST THROMBOTIC SYNDROME [None]
  - PAIN [None]
  - ANHEDONIA [None]
  - PAIN IN EXTREMITY [None]
  - ANXIETY [None]
  - INJURY [None]
  - OEDEMA PERIPHERAL [None]
